FAERS Safety Report 6268129-3 (Version None)
Quarter: 2009Q3

REPORT INFORMATION
  Report Type: 
  Country: None (occurrence: None)
  Receive Date: 20090715
  Receipt Date: 20070914
  Transmission Date: 20100115
  Serious: Yes (Other)
  Sender: FDA-Public Use
  Company Number: US-ASTRAZENECA-2007UW19095

PATIENT
  Age: 45 Year
  Sex: Female
  Weight: 92.5 kg

DRUGS (44)
  1. SEROQUEL [Suspect]
     Indication: ANXIETY
     Route: 048
     Dates: start: 20020801, end: 20070701
  2. SEROQUEL [Suspect]
     Indication: DEPRESSION
     Route: 048
     Dates: start: 20020801, end: 20070701
  3. SEROQUEL [Suspect]
     Indication: BIPOLAR DISORDER
     Route: 048
     Dates: start: 20020801, end: 20070701
  4. SEROQUEL [Suspect]
     Dosage: DOSE-  100MG-300MG DAILY
     Route: 048
     Dates: start: 20050509
  5. SEROQUEL [Suspect]
     Dosage: DOSE-  100MG-300MG DAILY
     Route: 048
     Dates: start: 20050509
  6. SEROQUEL [Suspect]
     Dosage: DOSE-  100MG-300MG DAILY
     Route: 048
     Dates: start: 20050509
  7. SEROQUEL [Suspect]
     Route: 048
     Dates: start: 20060101
  8. SEROQUEL [Suspect]
     Route: 048
     Dates: start: 20060101
  9. SEROQUEL [Suspect]
     Route: 048
     Dates: start: 20060101
  10. ZYPREXA [Concomitant]
     Indication: NERVOUSNESS
     Dates: start: 20020101, end: 20040101
  11. RISPERDAL [Concomitant]
     Dates: start: 19970901, end: 20040201
  12. ABILIFY [Concomitant]
     Dates: start: 20000101
  13. GEODON [Concomitant]
     Dates: start: 20040101
  14. NEXIUM [Concomitant]
     Indication: GASTROOESOPHAGEAL REFLUX DISEASE
     Dosage: DOSE-  40-80 MG DAILY
     Route: 048
  15. STRATTERA [Concomitant]
     Route: 048
  16. TOPAMAX [Concomitant]
     Dosage: STRENGTH-  100MG, 200MG.  DOSE-  200-400MG DAILY
     Route: 048
  17. XANAX XR [Concomitant]
     Dosage: 2-4 MG DAILY
     Route: 048
  18. KLOR-CON [Concomitant]
     Dosage: STRENGTH-  20 MEQ, 40MEQ.  DOSE-  20-40 MEQ DAILY
  19. ZOCOR [Concomitant]
     Route: 048
  20. VERAPAMIL [Concomitant]
     Indication: BLOOD PRESSURE
     Route: 048
  21. HYDROCHLOROTHIAZIDE [Concomitant]
     Route: 048
  22. ESGIC [Concomitant]
     Indication: MIGRAINE
     Route: 048
  23. PROAMATINE [Concomitant]
     Route: 048
  24. ZANAFLEX [Concomitant]
     Indication: MUSCLE SPASMS
     Dosage: STRENGTH- 4MG, 12 MG.  DOSE-  8-12 MG DAILY
     Route: 048
  25. ZANAFLEX [Concomitant]
     Indication: TENSION HEADACHE
     Dosage: STRENGTH- 4MG, 12 MG.  DOSE-  8-12 MG DAILY
     Route: 048
  26. CYMBALTA [Concomitant]
     Dosage: 60-120MG DAILY
     Route: 048
  27. TENORETIC 100 [Concomitant]
     Indication: BLOOD PRESSURE
     Dosage: DOSE-  25/12.5 MG
  28. ARTHROTEC [Concomitant]
     Dosage: DOSE-  75/200 MG TWO TIMES A DAY
     Route: 048
  29. LUVOX [Concomitant]
     Dosage: STRENGTH-  100MG, 200MG.  DOSE-  100-200 MG DAILY
     Route: 048
  30. PROTONIX [Concomitant]
     Route: 048
  31. KLONOPIN [Concomitant]
     Dosage: DOSE-  1.5-3MG DAILY
     Route: 048
  32. DEPAKOTE ER [Concomitant]
     Dosage: STRENGTH-  250MG, 500MG, 1000MG, 1750MG.  DOSE-  500-2000MD DAILY
  33. ROZEREM [Concomitant]
     Route: 048
  34. SOMA [Concomitant]
     Indication: MUSCLE SPASMS
     Dosage: DOSE-  1050-1400 MG DAILY
     Route: 048
  35. SOMA [Concomitant]
     Indication: MUSCLE STRAIN
     Dosage: DOSE-  1050-1400 MG DAILY
     Route: 048
  36. PAXIL [Concomitant]
     Dosage: STRENGTH-  20MG, 30MG, 40MG.  DOSE 20-40 MG DAILY.
  37. HALDOL [Concomitant]
     Indication: THINKING ABNORMAL
     Dosage: STRENGTH-  1MG, 2MG, 5MG.  DOSE-  1-5 MG DAILY
  38. HALDOL [Concomitant]
     Indication: HEADACHE
     Dosage: STRENGTH-  1MG, 2MG, 5MG.  DOSE-  1-5 MG DAILY
  39. BENADRYL [Concomitant]
     Route: 048
  40. NEURONTIN [Concomitant]
     Indication: ANXIETY
     Dosage: STERNGTH-  300MG, 600MG, 900MG.  DOSE-  1200-2100 MG DAILY.
     Route: 048
  41. PEPCID [Concomitant]
  42. ENABLEX [Concomitant]
  43. TRAZODONE [Concomitant]
  44. TRICOR [Concomitant]

REACTIONS (6)
  - ABDOMINAL PAIN [None]
  - ACUTE RESPIRATORY FAILURE [None]
  - DIABETES MELLITUS [None]
  - HYPERGLYCAEMIA [None]
  - RESPIRATORY DISTRESS [None]
  - TYPE 2 DIABETES MELLITUS [None]
